FAERS Safety Report 17818054 (Version 2)
Quarter: 2020Q2

REPORT INFORMATION
  Report Type: Spontaneous
  Country: US (occurrence: US)
  Receive Date: 20200522
  Receipt Date: 20200527
  Transmission Date: 20200714
  Serious: Yes (Life-Threatening, Other)
  Sender: FDA-Public Use
  Company Number: NVSC2020US137432

PATIENT
  Age: 90 Year
  Sex: Male

DRUGS (4)
  1. DIGOXIN. [Suspect]
     Active Substance: DIGOXIN
     Indication: ATRIAL FIBRILLATION
  2. ATROPINE. [Concomitant]
     Active Substance: ATROPINE
     Indication: CARDIAC FAILURE
     Dosage: UNK
     Route: 065
  3. DIGOXIN. [Suspect]
     Active Substance: DIGOXIN
     Indication: CARDIAC FAILURE
     Dosage: 0.125 MG, QD
     Route: 065
  4. ATROPINE. [Concomitant]
     Active Substance: ATROPINE
     Indication: ATRIAL FIBRILLATION

REACTIONS (3)
  - Acute kidney injury [Unknown]
  - Hyperkalaemia [Unknown]
  - Unresponsive to stimuli [Unknown]
